FAERS Safety Report 25461958 (Version 2)
Quarter: 2025Q3

REPORT INFORMATION
  Report Type: Spontaneous
  Country: US (occurrence: US)
  Receive Date: 20250620
  Receipt Date: 20250716
  Transmission Date: 20251020
  Serious: No
  Sender: JOHNSON AND JOHNSON
  Company Number: US-JNJFOC-20250623166

PATIENT
  Age: 22 Year
  Sex: Male
  Weight: 84.37 kg

DRUGS (2)
  1. REMICADE [Suspect]
     Active Substance: INFLIXIMAB
     Indication: Iridocyclitis
     Dosage: INCLUDED 5 VIALS
     Route: 041
     Dates: start: 20250211
  2. REMICADE [Suspect]
     Active Substance: INFLIXIMAB
     Dosage: INCLUDED 3 VIALS
     Route: 041
     Dates: start: 20250211

REACTIONS (5)
  - Product dose omission issue [Unknown]
  - Product dispensing error [Unknown]
  - Off label use [Unknown]
  - Administration site reaction [Unknown]
  - Treatment failure [Recovered/Resolved]
